FAERS Safety Report 15230876 (Version 2)
Quarter: 2018Q4

REPORT INFORMATION
  Report Type: Spontaneous
  Country: DE (occurrence: DE)
  Receive Date: 20180802
  Receipt Date: 20181228
  Transmission Date: 20190204
  Serious: Yes (Other)
  Sender: FDA-Public Use
  Company Number: DE-MERCK KGAA-2053118

PATIENT
  Sex: Female

DRUGS (6)
  1. EUTHYROX [Suspect]
     Active Substance: LEVOTHYROXINE SODIUM
  2. EUTHYROX [Suspect]
     Active Substance: LEVOTHYROXINE SODIUM
     Indication: AUTOIMMUNE THYROIDITIS
  3. EUTHYROX [Suspect]
     Active Substance: LEVOTHYROXINE SODIUM
  4. NOVOTHYRAL [Suspect]
     Active Substance: LEVOTHYROXINE SODIUM\LIOTHYRONINE SODIUM
  5. NOVOTHYRAL [Suspect]
     Active Substance: LEVOTHYROXINE SODIUM\LIOTHYRONINE SODIUM
  6. EUTHYROX [Suspect]
     Active Substance: LEVOTHYROXINE SODIUM

REACTIONS (6)
  - Underdose [None]
  - Asthenia [None]
  - Osteoporosis [None]
  - Breast cancer [None]
  - Somnolence [None]
  - Abnormal dreams [None]
